FAERS Safety Report 7424587-X (Version None)
Quarter: 2011Q2

REPORT INFORMATION
  Report Type: 
  Country: None (occurrence: None)
  Receive Date: 20110413
  Receipt Date: 20110328
  Transmission Date: 20111010
  Serious: Yes (Hospitalization)
  Sender: FDA-Public Use
  Company Number: CIO11005708

PATIENT
  Sex: Male

DRUGS (1)
  1. PEPTO-BISMOL ORIGINAL FORMULA, ORIGINAL FLAVOR (BISMUTH SUBSALICYLATE [Suspect]
     Dosage: ORAL
     Route: 048
     Dates: start: 20110323, end: 20110324

REACTIONS (1)
  - FAECES DISCOLOURED [None]
